FAERS Safety Report 15331979 (Version 1)
Quarter: 2018Q3

REPORT INFORMATION
  Report Type: Spontaneous
  Country: IT (occurrence: IT)
  Receive Date: 20180829
  Receipt Date: 20180829
  Transmission Date: 20181010
  Serious: Yes (Other)
  Sender: FDA-Public Use
  Company Number: PHHY2011IT65377

PATIENT
  Age: 6 Year
  Sex: Male

DRUGS (2)
  1. IMATINIB [Suspect]
     Active Substance: IMATINIB
     Indication: GANGLIOGLIOMA
     Dosage: UNK
     Route: 065
  2. TEMOZOLOMIDE. [Suspect]
     Active Substance: TEMOZOLOMIDE
     Indication: GANGLIOGLIOMA
     Dosage: UNK
     Route: 048

REACTIONS (3)
  - Precocious puberty [Recovering/Resolving]
  - Cardiotoxicity [Recovered/Resolved]
  - Visual impairment [Recovering/Resolving]
